FAERS Safety Report 20512364 (Version 1)
Quarter: 2022Q1

REPORT INFORMATION
  Report Type: Spontaneous
  Country: MA (occurrence: MA)
  Receive Date: 20220224
  Receipt Date: 20220224
  Transmission Date: 20220424
  Serious: Yes (Disabling, Other)
  Sender: FDA-Public Use
  Company Number: MA-PFIZER INC-202200296942

PATIENT
  Sex: Female

DRUGS (2)
  1. LORBRENA [Suspect]
     Active Substance: LORLATINIB
     Dosage: 100 MG
  2. LORBRENA [Suspect]
     Active Substance: LORLATINIB
     Dosage: 75 MG

REACTIONS (4)
  - Diplegia [Unknown]
  - Asthenia [Unknown]
  - Myalgia [Unknown]
  - Urinary incontinence [Unknown]

NARRATIVE: CASE EVENT DATE: 20220101
